FAERS Safety Report 10241225 (Version 1)
Quarter: 2014Q1

REPORT INFORMATION
  Report Type: Spontaneous
  Country: US (occurrence: None)
  Receive Date: 20140306
  Receipt Date: 20140306
  Transmission Date: 20141002
  Serious: Yes (Other)
  Sender: FDA-Public Use
  Company Number: 163-21880-13122924

PATIENT
  Age: 65 Year
  Sex: Male

DRUGS (7)
  1. REVLIMID (LENALIDOMIDE) (CAPSULES) [Suspect]
     Indication: PLASMA CELL MYELOMA
     Route: 048
     Dates: start: 201204
  2. COUMADIN (WARFARIN SODIUM) [Concomitant]
  3. ARIXTRA (FONDAPARINUX SODIUM) [Concomitant]
  4. PERCOCET (OXYCOCET) [Concomitant]
  5. ASA (ACETYLSALICYLIC ACID) [Concomitant]
  6. NEURONTIN (GABAPENTIN) [Concomitant]
  7. ZOVIRAX (ACICLOVIR) [Concomitant]

REACTIONS (1)
  - Thrombosis [None]
